FAERS Safety Report 9897914 (Version 1)
Quarter: 2014Q1

REPORT INFORMATION
  Report Type: Spontaneous
  Country: US (occurrence: US)
  Receive Date: 20140214
  Receipt Date: 20140214
  Transmission Date: 20141002
  Serious: No
  Sender: FDA-Public Use
  Company Number: US-PFIZER INC-2014041729

PATIENT
  Sex: Male

DRUGS (2)
  1. CELEBREX [Suspect]
     Dosage: UNK, TWICE DAILY
  2. CELEBREX [Suspect]
     Dosage: UNK, ONE A DAY

REACTIONS (2)
  - Intentional drug misuse [Unknown]
  - Abdominal discomfort [Unknown]
